FAERS Safety Report 18174250 (Version 1)
Quarter: 2020Q3

REPORT INFORMATION
  Report Type: Spontaneous
  Country: US (occurrence: US)
  Receive Date: 20200819
  Receipt Date: 20200819
  Transmission Date: 20201103
  Serious: Yes (Life-Threatening, Hospitalization)
  Sender: FDA-Public Use
  Company Number: None

PATIENT
  Age: 73 Year
  Sex: Female
  Weight: 104 kg

DRUGS (1)
  1. PRADAXA [Suspect]
     Active Substance: DABIGATRAN ETEXILATE MESYLATE

REACTIONS (7)
  - Vomiting [None]
  - Haemoglobin decreased [None]
  - Haemorrhage intracranial [None]
  - Headache [None]
  - Activated partial thromboplastin time prolonged [None]
  - Mental status changes [None]
  - Blood pressure increased [None]

NARRATIVE: CASE EVENT DATE: 20200817
